FAERS Safety Report 6443954-4 (Version None)
Quarter: 2009Q4

REPORT INFORMATION
  Report Type: 
  Country: None (occurrence: None)
  Receive Date: 20091113
  Receipt Date: 20091029
  Transmission Date: 20100525
  Serious: Yes (Hospitalization)
  Sender: FDA-Public Use
  Company Number: IDA-00282

PATIENT
  Age: 50 Year
  Sex: Male

DRUGS (6)
  1. PROPRANOLOL [Suspect]
     Indication: VARICES OESOPHAGEAL
     Dosage: 40 MG, ORAL FORMULATION: TABLET  DAILY
     Route: 048
     Dates: start: 20090209, end: 20090901
  2. PEGASYS [Suspect]
     Dosage: 1 DF WEEK, SUBCUTANEOUS
     Route: 058
     Dates: start: 20090220
  3. COPEGUS [Suspect]
     Dosage: 1.6 G DAILY / 2.4 G DAILY, ORAL
     Route: 048
     Dates: start: 20090220, end: 20090601
  4. COPEGUS [Suspect]
     Dosage: 1.6 G DAILY / 2.4 G DAILY, ORAL
     Route: 048
     Dates: start: 20090601
  5. KALETRA [Suspect]
     Dosage: 2 DF DAILY, ORAL
     Route: 048
     Dates: start: 20070101
  6. TRUVADA [Suspect]
     Dosage: 1 DF DAILY, ORAL
     Route: 048
     Dates: start: 20070101

REACTIONS (1)
  - PORPHYRIA NON-ACUTE [None]
